FAERS Safety Report 6245989-3 (Version None)
Quarter: 2009Q2

REPORT INFORMATION
  Report Type: 
  Country: None (occurrence: None)
  Receive Date: 20090626
  Receipt Date: 20081023
  Transmission Date: 20091009
  Serious: No
  Sender: FDA-Public Use
  Company Number: A0750487A

PATIENT
  Age: 14 Year
  Sex: Female

DRUGS (3)
  1. IMITREX [Suspect]
     Indication: MIGRAINE
     Dosage: 50MG SINGLE DOSE
     Route: 048
     Dates: start: 20081002
  2. MOTRIN [Suspect]
     Indication: MIGRAINE
     Dosage: 2TAB SINGLE DOSE
     Route: 048
     Dates: start: 20081002
  3. NO CONCURRENT MEDICATION [Concomitant]

REACTIONS (2)
  - HEADACHE [None]
  - VOMITING [None]
